FAERS Safety Report 6104989-4 (Version None)
Quarter: 2009Q1

REPORT INFORMATION
  Report Type: 
  Country: None (occurrence: None)
  Receive Date: 20090306
  Receipt Date: 20090303
  Transmission Date: 20090719
  Serious: Yes (Hospitalization)
  Sender: FDA-Public Use
  Company Number: US-CELGENEUS-163-21880-08121720

PATIENT
  Sex: Female

DRUGS (1)
  1. REVLIMID [Suspect]
     Route: 048
     Dates: start: 20081204, end: 20081226

REACTIONS (4)
  - DIARRHOEA [None]
  - HYPOGLYCAEMIA [None]
  - INTESTINAL OBSTRUCTION [None]
  - VOMITING [None]
